FAERS Safety Report 13219961 (Version 1)
Quarter: 2017Q1

REPORT INFORMATION
  Report Type: Other
  Country: GB (occurrence: GB)
  Receive Date: 20170210
  Receipt Date: 20170210
  Transmission Date: 20170428
  Serious: Yes (Hospitalization)
  Sender: FDA-Public Use
  Company Number: GB-LUPIN PHARMACEUTICALS INC.-E2B_00007309

PATIENT
  Age: 59 Year
  Sex: Female

DRUGS (3)
  1. LISINOPRIL. [Suspect]
     Active Substance: LISINOPRIL
     Indication: HYPERTENSION
     Route: 048
     Dates: start: 20170103, end: 20170116
  2. HYDROXYCHLOROQUINE [Concomitant]
     Active Substance: HYDROXYCHLOROQUINE
     Indication: PRODUCT USED FOR UNKNOWN INDICATION
     Route: 065
  3. PREDNISOLONE. [Concomitant]
     Active Substance: PREDNISOLONE
     Indication: PRODUCT USED FOR UNKNOWN INDICATION
     Route: 065

REACTIONS (9)
  - Herpes zoster [Unknown]
  - Angioedema [Recovering/Resolving]
  - Eyelid oedema [Unknown]
  - Lip swelling [Unknown]
  - Pain [Unknown]
  - Vision blurred [Unknown]
  - Oropharyngeal pain [Unknown]
  - Dry eye [Unknown]
  - Dysphagia [Unknown]

NARRATIVE: CASE EVENT DATE: 20170110
